FAERS Safety Report 6873539-7 (Version None)
Quarter: 2010Q3

REPORT INFORMATION
  Report Type: 
  Country: None (occurrence: None)
  Receive Date: 20100723
  Receipt Date: 20090209
  Transmission Date: 20110219
  Serious: No
  Sender: FDA-Public Use
  Company Number: US-PFIZER INC-2009170384

PATIENT
  Sex: Male
  Weight: 72.562 kg

DRUGS (3)
  1. CHANTIX [Suspect]
     Indication: SMOKING CESSATION THERAPY
     Dosage: UNK
     Route: 048
     Dates: start: 20070101, end: 20080101
  2. ANTIHYPERTENSIVES [Concomitant]
     Dosage: UNK
  3. ANTI-ASTHMATICS [Concomitant]
     Dosage: UNK

REACTIONS (2)
  - DEPRESSION [None]
  - THINKING ABNORMAL [None]
